FAERS Safety Report 23994435 (Version 5)
Quarter: 2025Q1

REPORT INFORMATION
  Report Type: Spontaneous
  Country: US (occurrence: US)
  Receive Date: 20240620
  Receipt Date: 20250318
  Transmission Date: 20250409
  Serious: No
  Sender: EISAI
  Company Number: US-Eisai-EC-2024-165252

PATIENT
  Age: 78 Year
  Sex: Female
  Weight: 102 kg

DRUGS (1)
  1. LEQEMBI [Suspect]
     Active Substance: LECANEMAB-IRMB
     Indication: Dementia Alzheimer^s type
     Dates: start: 20240422, end: 20240819

REACTIONS (6)
  - Pyrexia [Recovered/Resolved]
  - Urinary tract infection [Recovered/Resolved]
  - Hallucination [Unknown]
  - Amyloid related imaging abnormality-oedema/effusion [Unknown]
  - Dementia Alzheimer^s type [Unknown]
  - Delusion [Recovering/Resolving]

NARRATIVE: CASE EVENT DATE: 20240101
